FAERS Safety Report 7970520-1 (Version None)
Quarter: 2011Q4

REPORT INFORMATION
  Report Type: 
  Country: None (occurrence: None)
  Receive Date: 20111212
  Receipt Date: 20111128
  Transmission Date: 20120403
  Serious: Yes (Hospitalization)
  Sender: FDA-Public Use
  Company Number: CN-SANOFI-AVENTIS-2011SA080171

PATIENT
  Age: 60 Year
  Sex: Male
  Weight: 70 kg

DRUGS (7)
  1. OXALIPLATIN [Suspect]
     Route: 042
     Dates: start: 20110712, end: 20111006
  2. FLUOROURACIL [Suspect]
     Route: 042
     Dates: start: 20110712, end: 20111007
  3. LEUCOVORIN CALCIUM [Suspect]
     Route: 042
     Dates: start: 20110712, end: 20111007
  4. LEUCOVORIN CALCIUM [Suspect]
     Route: 042
     Dates: end: 20111017
  5. FLUOROURACIL [Suspect]
     Dosage: DOSE TO BE CLARIFIED
     Route: 042
     Dates: start: 20111008, end: 20111008
  6. OXALIPLATIN [Suspect]
     Route: 042
     Dates: end: 20111017
  7. FLUOROURACIL [Suspect]
     Dosage: DOSE TO BE CLARIFIED
     Route: 042
     Dates: end: 20111017

REACTIONS (1)
  - ATRIAL FLUTTER [None]
